FAERS Safety Report 8017052-2 (Version None)
Quarter: 2012Q1

REPORT INFORMATION
  Report Type: 
  Country: None (occurrence: None)
  Receive Date: 20120102
  Receipt Date: 20111219
  Transmission Date: 20120608
  Serious: Yes (Other)
  Sender: FDA-Public Use
  Company Number: PHHY2011US39934

PATIENT
  Sex: Female

DRUGS (2)
  1. AFINITOR [Suspect]
     Dosage: 10 MG, QD
     Route: 048
     Dates: start: 20110101
  2. TEGRETOL [Suspect]
     Indication: TRIGEMINAL NEURALGIA

REACTIONS (16)
  - BALANCE DISORDER [None]
  - RASH PRURITIC [None]
  - NEOPLASM PROGRESSION [None]
  - FATIGUE [None]
  - VISUAL IMPAIRMENT [None]
  - NEOPLASM MALIGNANT [None]
  - VOMITING [None]
  - METASTASES TO SPINE [None]
  - FALL [None]
  - DECREASED APPETITE [None]
  - BRAIN NEOPLASM [None]
  - NAUSEA [None]
  - MOVEMENT DISORDER [None]
  - DRUG INEFFECTIVE [None]
  - HIP FRACTURE [None]
  - WEIGHT DECREASED [None]
